FAERS Safety Report 24290408 (Version 1)
Quarter: 2024Q3

REPORT INFORMATION
  Report Type: Spontaneous
  Country: US (occurrence: US)
  Receive Date: 20240906
  Receipt Date: 20240906
  Transmission Date: 20241016
  Serious: Yes (Other)
  Sender: BAXTER
  Company Number: US-BAXTER-2024BAX023850

PATIENT
  Age: 76 Year
  Sex: Male
  Weight: 108.1 kg

DRUGS (2)
  1. MYXREDLIN [Suspect]
     Active Substance: INSULIN HUMAN
     Indication: Diabetes mellitus
     Dosage: 10 UNITS/HOUR DILUTED IN 100 ML OF 0.9% SODIUM CHLORIDE INFUSION
     Route: 065
     Dates: start: 20240710
  2. MYXREDLIN [Suspect]
     Active Substance: INSULIN HUMAN
     Indication: Diabetes mellitus inadequate control
     Dosage: 25 UNITS/HOUR
     Route: 065
     Dates: start: 20240711

REACTIONS (2)
  - Critical illness [Unknown]
  - Drug ineffective [Recovering/Resolving]

NARRATIVE: CASE EVENT DATE: 20240710
